FAERS Safety Report 16866768 (Version 1)
Quarter: 2019Q3

REPORT INFORMATION
  Report Type: Report from Study
  Country: IT (occurrence: IT)
  Receive Date: 20190930
  Receipt Date: 20190930
  Transmission Date: 20191005
  Serious: Yes (Hospitalization, Other)
  Sender: FDA-Public Use
  Company Number: IT-ACCORD-155624

PATIENT
  Age: 50 Year
  Sex: Female

DRUGS (3)
  1. FLUOROURACIL. [Concomitant]
     Active Substance: FLUOROURACIL
     Indication: GASTROINTESTINAL NEOPLASM
     Dosage: TOTAL OF 8 CYCLES
  2. OXALIPLATIN. [Suspect]
     Active Substance: OXALIPLATIN
     Indication: GASTROINTESTINAL NEOPLASM
     Dosage: TOTAL OF 8 CYCLES
  3. FOLINIC ACID [Concomitant]
     Active Substance: LEUCOVORIN
     Indication: GASTROINTESTINAL NEOPLASM
     Dosage: TOTAL OF 8 CYCLES

REACTIONS (2)
  - Non-cirrhotic portal hypertension [Recovering/Resolving]
  - Off label use [Unknown]
